FAERS Safety Report 8952508 (Version 2)
Quarter: 2012Q4

REPORT INFORMATION
  Report Type: 
  Country: US (occurrence: US)
  Receive Date: 20121205
  Receipt Date: 20121214
  Transmission Date: 20130627
  Serious: Yes (Other)
  Sender: FDA-Public Use
  Company Number: US-JNJFOC-20121000688

PATIENT
  Age: 83 None
  Sex: Female
  Weight: 54.43 kg

DRUGS (14)
  1. SIMPONI [Suspect]
     Indication: RHEUMATOID ARTHRITIS
     Route: 058
     Dates: start: 20120928
  2. SIMPONI [Suspect]
     Indication: RHEUMATOID ARTHRITIS
     Route: 058
     Dates: start: 2012
  3. METHOTREXATE [Concomitant]
     Indication: RHEUMATOID ARTHRITIS
     Route: 048
  4. PAIN MEDICATION [Concomitant]
     Indication: ARTHRALGIA
     Route: 048
  5. TORSEMIDE [Concomitant]
     Route: 065
  6. RAMIPRIL [Concomitant]
     Route: 065
  7. FOLIC ACID [Concomitant]
     Route: 065
  8. DOXAZOSIN [Concomitant]
     Route: 065
  9. SYNTHROID [Concomitant]
     Route: 065
  10. VITAMIN D [Concomitant]
     Route: 065
  11. FISH OIL [Concomitant]
     Route: 065
  12. FERGON [Concomitant]
     Route: 065
  13. LIPITOR [Concomitant]
     Route: 065
  14. XANAX [Concomitant]
     Route: 065

REACTIONS (7)
  - Heart valve replacement [Unknown]
  - Skin discolouration [Not Recovered/Not Resolved]
  - Device malfunction [Unknown]
  - Injection site haemorrhage [Recovered/Resolved]
  - Rheumatoid arthritis [Not Recovered/Not Resolved]
  - Malaise [Not Recovered/Not Resolved]
  - Underdose [Not Recovered/Not Resolved]
